FAERS Safety Report 16228866 (Version 1)
Quarter: 2019Q2

REPORT INFORMATION
  Report Type: Spontaneous
  Country: IT (occurrence: IT)
  Receive Date: 20190423
  Receipt Date: 20190423
  Transmission Date: 20190711
  Serious: Yes (Other)
  Sender: FDA-Public Use
  Company Number: IT-DSJP-DSE-2019-114856

PATIENT

DRUGS (1)
  1. GIANT [Suspect]
     Active Substance: AMLODIPINE BESYLATE\OLMESARTAN MEDOXOMIL
     Indication: HYPERTENSION
     Dosage: UNK
     Route: 048
     Dates: start: 20180801

REACTIONS (6)
  - Hypoalbuminaemia [Unknown]
  - Diarrhoea [Recovered/Resolved]
  - Eczema [Recovered/Resolved]
  - Inflammatory bowel disease [Unknown]
  - Hypokalaemia [Unknown]
  - Weight decreased [Unknown]

NARRATIVE: CASE EVENT DATE: 20180801
